FAERS Safety Report 8029660-3 (Version None)
Quarter: 2012Q1

REPORT INFORMATION
  Report Type: 
  Country: None (occurrence: None)
  Receive Date: 20120109
  Receipt Date: 20120104
  Transmission Date: 20120608
  Serious: Yes (Other)
  Sender: FDA-Public Use
  Company Number: BR-PFIZER INC-2011296215

PATIENT
  Age: 50 Year
  Sex: Female
  Weight: 95 kg

DRUGS (5)
  1. DIACEREIN/MELOXICAM [Concomitant]
     Indication: SPINAL OSTEOARTHRITIS
     Dosage: [DIACEREIN 50 MG]/[MELOXICAM 7.5 MG] 1 TABLET DAILY
  2. VARENICLINE TARTRATE [Suspect]
     Dosage: UNK
     Route: 048
     Dates: start: 20111221, end: 20111201
  3. VARENICLINE TARTRATE [Suspect]
     Dosage: 2 TABLETS DAILY
     Route: 048
     Dates: start: 20111201
  4. VARENICLINE TARTRATE [Suspect]
     Indication: SMOKING CESSATION THERAPY
     Dosage: UNK
     Route: 048
     Dates: start: 20100101
  5. VARENICLINE TARTRATE [Suspect]
     Dosage: 1 MG, 2X/DAY
     Route: 048
     Dates: start: 20111205, end: 20111201

REACTIONS (2)
  - URINARY TRACT INFECTION [None]
  - DYSURIA [None]
